FAERS Safety Report 5769541-9 (Version None)
Quarter: 2008Q2

REPORT INFORMATION
  Report Type: 
  Country: None (occurrence: None)
  Receive Date: 20080612
  Receipt Date: 20080331
  Transmission Date: 20081010
  Serious: No
  Sender: FDA-Public Use
  Company Number: US-ABBOTT-08P-163-0445181-00

PATIENT
  Sex: Male
  Weight: 104.42 kg

DRUGS (2)
  1. HUMIRA [Suspect]
     Indication: PSORIATIC ARTHROPATHY
     Route: 058
     Dates: start: 20071127
  2. HUMIRA [Suspect]
     Indication: PSORIASIS

REACTIONS (4)
  - ARTHRALGIA [None]
  - ARTHRITIS [None]
  - DRUG INEFFECTIVE [None]
  - OEDEMA PERIPHERAL [None]
